FAERS Safety Report 4633021-4 (Version None)
Quarter: 2005Q2

REPORT INFORMATION
  Report Type: 
  Country: None (occurrence: None)
  Receive Date: 20050412
  Receipt Date: 20050330
  Transmission Date: 20051028
  Serious: Yes (Hospitalization, Other)
  Sender: FDA-Public Use
  Company Number: US-GLAXOSMITHKLINE-A0551902A

PATIENT
  Age: 55 Year
  Sex: Female
  Weight: 69.5 kg

DRUGS (5)
  1. GOODY'S POWDER [Suspect]
     Indication: PAIN
     Route: 048
     Dates: end: 19950101
  2. METFORMIN HCL [Concomitant]
     Indication: DIABETES MELLITUS
     Dates: start: 20020101
  3. LISINOPRIL [Concomitant]
     Indication: HYPERTENSION
  4. ELAVIL [Concomitant]
     Indication: NEUROPATHY
  5. ZOLOFT [Concomitant]
     Indication: DEPRESSION

REACTIONS (2)
  - GLOSSODYNIA [None]
  - INTERVERTEBRAL DISC PROTRUSION [None]
